FAERS Safety Report 6706031-0 (Version None)
Quarter: 2010Q2

REPORT INFORMATION
  Report Type: 
  Country: None (occurrence: None)
  Receive Date: 20100503
  Receipt Date: 20100428
  Transmission Date: 20101027
  Serious: Yes (Other)
  Sender: FDA-Public Use
  Company Number: AT-BRISTOL-MYERS SQUIBB COMPANY-14955686

PATIENT
  Age: 36 Year
  Sex: Female

DRUGS (2)
  1. ABILIFY [Suspect]
     Indication: SCHIZOAFFECTIVE DISORDER
     Route: 048
     Dates: start: 20070701
  2. LITHIUM [Suspect]
     Indication: SCHIZOAFFECTIVE DISORDER
     Dates: start: 20070101

REACTIONS (4)
  - CAESAREAN SECTION [None]
  - GESTATIONAL DIABETES [None]
  - LIVE BIRTH [None]
  - PREGNANCY [None]
